FAERS Safety Report 7307437-1 (Version None)
Quarter: 2011Q1

REPORT INFORMATION
  Report Type: 
  Country: None (occurrence: None)
  Receive Date: 20110210
  Receipt Date: 20110202
  Transmission Date: 20110831
  Serious: Yes (Death, Hospitalization)
  Sender: FDA-Public Use
  Company Number: UTC-005102

PATIENT
  Age: 48 Year
  Sex: Male
  Weight: 59 kg

DRUGS (2)
  1. TRACLEER [Concomitant]
  2. REMODULIN [Suspect]
     Dosage: 66.24 UG/KG (0.046 UG/KG,1 IN 1 MIN), SUBCUTANEOUS
     Route: 058

REACTIONS (1)
  - DEATH [None]
